FAERS Safety Report 18562024 (Version 5)
Quarter: 2021Q1

REPORT INFORMATION
  Report Type: Report from Study
  Country: DE (occurrence: DE)
  Receive Date: 20201201
  Receipt Date: 20210113
  Transmission Date: 20210419
  Serious: Yes (Hospitalization)
  Sender: FDA-Public Use
  Company Number: DE-AMGEN-DEUCT2020192626

PATIENT
  Age: 65 Year
  Sex: Female
  Weight: 72 kg

DRUGS (21)
  1. ELOTUZUMAB. [Suspect]
     Active Substance: ELOTUZUMAB
     Indication: PLASMA CELL MYELOMA
     Dosage: 1720 MILLIGRAM, PER CHEMO REGIM
     Route: 042
     Dates: start: 20190701
  2. COTRIMOXAZOLE [Concomitant]
     Active Substance: SULFAMETHOXAZOLE\TRIMETHOPRIM
     Indication: ANTIFUNGAL PROPHYLAXIS
     Dosage: 960/800 MILLIGRAM , 3 X/WEEK
     Route: 048
     Dates: start: 20190702
  3. PRAVASTATIN. [Concomitant]
     Active Substance: PRAVASTATIN
     Indication: BLOOD CHOLESTEROL INCREASED
     Dosage: 40 MILLIGRAM, 1X/DAY
     Route: 048
     Dates: start: 20190621
  4. FELODIPIN [Concomitant]
     Active Substance: FELODIPINE
     Indication: BLOOD PRESSURE INCREASED
     Dosage: 10 MILLIGRAM, 1X/DAY
     Route: 048
     Dates: start: 20190621
  5. LANTUS [Concomitant]
     Active Substance: INSULIN GLARGINE
     Indication: TYPE 2 DIABETES MELLITUS
     Dosage: 20 IE 3X/DAY
     Route: 058
     Dates: start: 20190621
  6. MELPHALAN. [Concomitant]
     Active Substance: MELPHALAN
     Dosage: 100 MILLIGRAM/SQ. METER, QD (DAILY ABSOLUTE DOSE: 192 MG)
     Dates: start: 20200221, end: 20200222
  7. CARFILZOMIB [Suspect]
     Active Substance: CARFILZOMIB
     Indication: PLASMA CELL MYELOMA
     Dosage: 69 MILLIGRAM, PER CHEMO REGIM
     Route: 042
     Dates: start: 20190701
  8. XARELTO [Concomitant]
     Active Substance: RIVAROXABAN
     Indication: ANTICOAGULANT THERAPY
     Dosage: 15 MILLIGRAM 1X/DAY
     Route: 048
     Dates: start: 20190621
  9. NEUPOGEN [Concomitant]
     Active Substance: FILGRASTIM
     Dosage: UNK, (48 MIO. IU)
     Dates: start: 20191003, end: 20191018
  10. FILGRASTIM [Concomitant]
     Active Substance: FILGRASTIM
     Dosage: UNK, (48 MIO. IU)
     Dates: end: 20200306
  11. L?THYROXINE [LEVOTHYROXINE] [Concomitant]
     Active Substance: LEVOTHYROXINE
     Indication: HYPOTHYROIDISM
     Dosage: 50 MICROGRAM 1X/DAY
     Route: 048
     Dates: start: 20190621
  12. LENALIDOMIDE [Suspect]
     Active Substance: LENALIDOMIDE
     Indication: PLASMA CELL MYELOMA
     Dosage: 5 MILLIGRAM, PER CHEMO REGIM
     Route: 048
     Dates: start: 20190701, end: 20201101
  13. DEXAMETHASONE. [Suspect]
     Active Substance: DEXAMETHASONE
     Dosage: 8 MILLIGRAM, PER CHEMO REGIM
     Route: 042
  14. BISOPROLOL [Concomitant]
     Active Substance: BISOPROLOL
     Indication: BLOOD PRESSURE INCREASED
     Dosage: 5 MILLIGRAM, 1X/DAY
     Route: 048
     Dates: start: 20190621
  15. APIDRA [Concomitant]
     Active Substance: INSULIN GLULISINE
     Indication: TYPE 2 DIABETES MELLITUS
     Dosage: 12?18 IE 3X/DAY
     Route: 058
     Dates: start: 20190621
  16. DEXAMETHASONE. [Suspect]
     Active Substance: DEXAMETHASONE
     Dosage: UNK UNK, PER CHEMO REGIM
     Route: 065
     Dates: start: 20201214
  17. ACICLOVIR [Concomitant]
     Active Substance: ACYCLOVIR
     Indication: ANTIVIRAL PROPHYLAXIS
     Dosage: 400 MILLIGRAM 2X/DAY
     Route: 048
     Dates: start: 20190702
  18. TELMISARTAN. [Concomitant]
     Active Substance: TELMISARTAN
     Indication: BLOOD PRESSURE INCREASED
     Dosage: 80 MILLIGRAM, 1X/DAY
     Route: 048
     Dates: start: 20190621
  19. ELOTUZUMAB. [Suspect]
     Active Substance: ELOTUZUMAB
     Dosage: UNK UNK, PER CHEMO REGIM
     Route: 042
     Dates: start: 20201214
  20. DEXAMETHASONE. [Suspect]
     Active Substance: DEXAMETHASONE
     Indication: PLASMA CELL MYELOMA
     Dosage: 28 MILLIGRAM, PER CHEMO REGIM
     Route: 048
     Dates: start: 20190701
  21. CYCLOPHOSPHAMIDE. [Concomitant]
     Active Substance: CYCLOPHOSPHAMIDE
     Dosage: 4500 MILLIGRAM/SQ. METER, QD (DAILY ABSOLUTE DOSE: 8595 MG)
     Dates: start: 20190929, end: 20190929

REACTIONS (1)
  - Infection [Recovered/Resolved]

NARRATIVE: CASE EVENT DATE: 20201124
